FAERS Safety Report 5642335-0 (Version None)
Quarter: 2008Q1

REPORT INFORMATION
  Report Type: 
  Country: None (occurrence: None)
  Receive Date: 20080228
  Receipt Date: 20080225
  Transmission Date: 20080703
  Serious: Yes (Other)
  Sender: FDA-Public Use
  Company Number: FR-RB-007325-07

PATIENT
  Age: 38 Year
  Sex: Female

DRUGS (2)
  1. SUBUTEX [Suspect]
     Indication: DRUG DEPENDENCE
     Route: 042
     Dates: start: 19960101, end: 20070101
  2. SUBUTEX [Suspect]
     Route: 060
     Dates: start: 19960101, end: 20070101

REACTIONS (2)
  - INTENTIONAL DRUG MISUSE [None]
  - LYMPHOEDEMA [None]
